FAERS Safety Report 8433876 (Version 6)
Quarter: 2013Q2

REPORT INFORMATION
  Report Type: Report from Study
  Country: US (occurrence: US)
  Receive Date: 20120229
  Receipt Date: 20130416
  Transmission Date: 20140414
  Serious: Yes (Other)
  Sender: FDA-Public Use
  Company Number: US-PFIZER INC-2012033593

PATIENT
  Age: 57 Year
  Sex: Male
  Weight: 102 kg

DRUGS (7)
  1. CRIZOTINIB [Suspect]
     Indication: NON-SMALL CELL LUNG CANCER
     Dosage: 250 MG, 2X/DAY
     Route: 048
     Dates: start: 20101028, end: 20101208
  2. CRIZOTINIB [Suspect]
     Dosage: 200 MG, 2X/DAY
     Route: 048
     Dates: start: 20101209
  3. DIPHENOXYLATE W/ATROPINE SULFATE [Concomitant]
     Indication: DIARRHOEA
     Dosage: UNK, AS NEEDED
     Route: 048
     Dates: start: 20110608
  4. ONDANSETRON [Concomitant]
     Indication: PROPHYLAXIS OF NAUSEA AND VOMITING
     Dosage: UNK, AS NEEDED
     Route: 048
     Dates: start: 20101028
  5. TYLENOL [Concomitant]
     Indication: OSTEOARTHRITIS
     Dosage: UNK, AS NEEDED
     Route: 048
     Dates: start: 20101028
  6. COUMADINE [Concomitant]
     Indication: DEEP VEIN THROMBOSIS
     Dosage: UNK, 1X/DAY
     Route: 048
  7. IBUPROFEN [Concomitant]
     Indication: PAIN
     Dosage: UNK, AS NEEDED
     Route: 048
     Dates: start: 20101028

REACTIONS (4)
  - Second primary malignancy [Recovered/Resolved]
  - Malignant melanoma [Recovered/Resolved]
  - Second primary malignancy [Recovered/Resolved]
  - Basal cell carcinoma [Recovered/Resolved]
